FAERS Safety Report 17659458 (Version 1)
Quarter: 2020Q2

REPORT INFORMATION
  Report Type: Spontaneous
  Country: SE (occurrence: SE)
  Receive Date: 20200413
  Receipt Date: 20200413
  Transmission Date: 20200713
  Serious: Yes (Other)
  Sender: FDA-Public Use
  Company Number: SE-TEVA-2020-SE-1222116

PATIENT
  Age: 53 Year
  Sex: Female
  Weight: 58 kg

DRUGS (2)
  1. NOVOFEM [Concomitant]
     Active Substance: ESTRADIOL HEMIHYDRATE\NORETHINDRONE ACETATE
     Dates: start: 20200225
  2. NAPROXEN. [Suspect]
     Active Substance: NAPROXEN
     Indication: DYSMENORRHOEA
     Dosage: 1 ST
     Dates: start: 20200328, end: 20200329

REACTIONS (2)
  - Blindness transient [Recovering/Resolving]
  - Headache [Recovering/Resolving]

NARRATIVE: CASE EVENT DATE: 20200329
